FAERS Safety Report 18279149 (Version 1)
Quarter: 2020Q3

REPORT INFORMATION
  Report Type: Spontaneous
  Country: JP (occurrence: JP)
  Receive Date: 20200917
  Receipt Date: 20200917
  Transmission Date: 20201103
  Serious: Yes (Hospitalization)
  Sender: FDA-Public Use
  Company Number: JP-ASTRAZENECA-2020SF17257

PATIENT
  Age: 74 Year
  Sex: Female

DRUGS (1)
  1. BUDESONIDE GLYCOPYRRONIUM BROMIDE FORMOTEROL FUMARATE HYDRATE [Suspect]
     Active Substance: BUDESONIDE\FORMOTEROL\GLYCOPYRRONIUM
     Indication: CHRONIC OBSTRUCTIVE PULMONARY DISEASE
     Route: 055

REACTIONS (3)
  - Constipation [Unknown]
  - Chronic obstructive pulmonary disease [Unknown]
  - Decreased appetite [Unknown]

NARRATIVE: CASE EVENT DATE: 20200905
